FAERS Safety Report 11231406 (Version 3)
Quarter: 2015Q4

REPORT INFORMATION
  Report Type: Spontaneous
  Country: US (occurrence: US)
  Receive Date: 20150701
  Receipt Date: 20151113
  Transmission Date: 20160304
  Serious: Yes (Hospitalization)
  Sender: FDA-Public Use
  Company Number: US-BAYER-2015-368590

PATIENT
  Age: 39 Year
  Sex: Female
  Weight: 77.55 kg

DRUGS (12)
  1. GABAPENTIN. [Concomitant]
     Active Substance: GABAPENTIN
     Dosage: UNK
     Dates: start: 20110901
  2. ULTRAM [Concomitant]
     Active Substance: TRAMADOL HYDROCHLORIDE
  3. NAPROXEN. [Concomitant]
     Active Substance: NAPROXEN
  4. OXYCODONE [Concomitant]
     Active Substance: OXYCODONE
  5. CIPRO [Concomitant]
     Active Substance: CIPROFLOXACIN HYDROCHLORIDE
  6. MIRENA [Suspect]
     Active Substance: LEVONORGESTREL
     Indication: MENORRHAGIA
     Dosage: 20 MCG/24HR, CONT
     Route: 015
     Dates: start: 20110223, end: 20120125
  7. PERCOCET [Concomitant]
     Active Substance: ACETAMINOPHEN\OXYCODONE HYDROCHLORIDE
  8. NICOTINE. [Concomitant]
     Active Substance: NICOTINE
  9. BUPROPION. [Concomitant]
     Active Substance: BUPROPION
  10. AMBIEN [Concomitant]
     Active Substance: ZOLPIDEM TARTRATE
  11. PHENAZOPYRIDINE. [Concomitant]
     Active Substance: PHENAZOPYRIDINE
  12. HYDROCHLOROTHIAZIDE. [Concomitant]
     Active Substance: HYDROCHLOROTHIAZIDE

REACTIONS (9)
  - Injury [None]
  - Genital haemorrhage [None]
  - Anxiety [None]
  - Dizziness [None]
  - Abdominal pain lower [None]
  - Emotional distress [None]
  - Device issue [None]
  - Uterine perforation [None]
  - Depression [None]

NARRATIVE: CASE EVENT DATE: 201104
